FAERS Safety Report 11140132 (Version 4)
Quarter: 2018Q1

REPORT INFORMATION
  Report Type: Report from Study
  Country: None (occurrence: BR)
  Receive Date: 20150527
  Receipt Date: 20180104
  Transmission Date: 20180508
  Serious: Yes (Hospitalization, Other)
  Sender: FDA-Public Use
  Company Number: BR-ABBVIE-15K-020-1356518-00

PATIENT
  Age: 63 Year
  Sex: Female
  Weight: 89 kg

DRUGS (13)
  1. AZATHIOPRINE. [Concomitant]
     Active Substance: AZATHIOPRINE
     Indication: CROHN^S DISEASE
     Route: 048
  2. LOSARTAN. [Concomitant]
     Active Substance: LOSARTAN
     Indication: HYPERTENSION
     Route: 048
     Dates: start: 200603
  3. HUMIRA [Suspect]
     Active Substance: ADALIMUMAB
     Route: 058
  4. HUMIRA [Suspect]
     Active Substance: ADALIMUMAB
     Route: 058
     Dates: start: 20150701
  5. CHLORTHALIDONE. [Concomitant]
     Active Substance: CHLORTHALIDONE
     Indication: HYPERTENSION
     Route: 048
     Dates: start: 200603
  6. PURAN [Concomitant]
     Active Substance: LEVOTHYROXINE SODIUM
     Indication: HYPOTHYROIDISM
     Route: 048
     Dates: start: 2000
  7. HUMIRA [Suspect]
     Active Substance: ADALIMUMAB
     Dosage: WEEK 02,LOADING DOSE
     Route: 058
  8. DEFLAZACORT [Concomitant]
     Active Substance: DEFLAZACORT
     Indication: RHEUMATIC DISORDER
     Route: 048
     Dates: start: 200103
  9. HUMIRA [Suspect]
     Active Substance: ADALIMUMAB
     Indication: CROHN^S DISEASE
     Dosage: LOADING DOSE,WEEK 00
     Route: 058
     Dates: start: 2013, end: 2013
  10. HUMIRA [Suspect]
     Active Substance: ADALIMUMAB
     Route: 058
     Dates: start: 20150331, end: 2015
  11. HUMIRA [Suspect]
     Active Substance: ADALIMUMAB
     Route: 058
     Dates: start: 20150515, end: 2015
  12. BEZAFIBRATE [Concomitant]
     Active Substance: BEZAFIBRATE
     Indication: PRODUCT USED FOR UNKNOWN INDICATION
     Route: 048
     Dates: start: 200903
  13. OMEPRAZOLE. [Concomitant]
     Active Substance: OMEPRAZOLE
     Indication: GASTRIC DISORDER
     Route: 048

REACTIONS (12)
  - Large intestinal stenosis [Recovered/Resolved]
  - Anaemia [Recovered/Resolved]
  - Gastrointestinal inflammation [Recovered/Resolved]
  - Faecal vomiting [Recovered/Resolved]
  - Abdominal pain [Recovering/Resolving]
  - Intestinal obstruction [Recovered/Resolved]
  - Vitamin D deficiency [Recovered/Resolved]
  - Diarrhoea [Recovered/Resolved]
  - Flatulence [Recovered/Resolved]
  - Gait disturbance [Not Recovered/Not Resolved]
  - Intestinal obstruction [Recovered/Resolved]
  - Gastrointestinal inflammation [Recovering/Resolving]

NARRATIVE: CASE EVENT DATE: 2014
